FAERS Safety Report 8610012-X (Version None)
Quarter: 2012Q3

REPORT INFORMATION
  Report Type: 
  Country: None (occurrence: None)
  Receive Date: 20120822
  Receipt Date: 20120703
  Transmission Date: 20120928
  Serious: No
  Sender: FDA-Public Use
  Company Number: US-009507513-2012SP028683

PATIENT

DRUGS (3)
  1. MIRALAX [Suspect]
     Indication: CONSTIPATION
     Dosage: 17 G, QD
     Route: 048
     Dates: start: 20091101
  2. MIRALAX [Suspect]
     Indication: MEDICAL OBSERVATION
  3. MIRALAX [Suspect]
     Indication: MENOPAUSE

REACTIONS (3)
  - DYSGEUSIA [None]
  - PAROSMIA [None]
  - INCORRECT DRUG ADMINISTRATION DURATION [None]
